FAERS Safety Report 24128904 (Version 1)
Quarter: 2024Q3

REPORT INFORMATION
  Report Type: Spontaneous
  Country: US (occurrence: None)
  Receive Date: 20240722
  Receipt Date: 20240722
  Transmission Date: 20241017
  Serious: Yes (Life-Threatening, Hospitalization)
  Sender: Public
  Company Number: None

PATIENT
  Age: 48 Year
  Sex: Female
  Weight: 90.45 kg

DRUGS (2)
  1. METAXALONE [Suspect]
     Active Substance: METAXALONE
     Indication: Pain
     Dosage: 1 TABLET 3 TIMES A DAY ORAL
     Route: 048
     Dates: start: 20240716, end: 20240719
  2. LISINOPRIL [Suspect]
     Active Substance: LISINOPRIL

REACTIONS (7)
  - Loss of consciousness [None]
  - Fall [None]
  - Thrombosis [None]
  - Syncope [None]
  - Blood pressure decreased [None]
  - Drug interaction [None]
  - Drug level increased [None]

NARRATIVE: CASE EVENT DATE: 20240716
